FAERS Safety Report 14601154 (Version 1)
Quarter: 2018Q1

REPORT INFORMATION
  Report Type: Spontaneous
  Country: TR (occurrence: TR)
  Receive Date: 20180305
  Receipt Date: 20180305
  Transmission Date: 20180509
  Serious: Yes (Hospitalization)
  Sender: FDA-Public Use
  Company Number: TR-ABBVIE-18P-161-2270811-00

PATIENT

DRUGS (1)
  1. SEVOFLURANE. [Suspect]
     Active Substance: SEVOFLURANE
     Indication: ANAESTHESIA
     Dosage: UNKNOWN
     Route: 055

REACTIONS (8)
  - Oxygen saturation decreased [Unknown]
  - Bradycardia [Unknown]
  - Tachycardia [Unknown]
  - Hypotension [Unknown]
  - Nausea [Unknown]
  - Inadequate analgesia [Unknown]
  - Hypertension [Unknown]
  - Vomiting [Unknown]
